FAERS Safety Report 11729200 (Version 1)
Quarter: 2015Q4

REPORT INFORMATION
  Report Type: Spontaneous
  Country: US (occurrence: US)
  Receive Date: 20151112
  Receipt Date: 20151112
  Transmission Date: 20160304
  Serious: Yes (Other)
  Sender: FDA-Public Use
  Company Number: US-TEVA-608852USA

PATIENT
  Age: 31 Year
  Sex: Female

DRUGS (1)
  1. COPAXONE [Suspect]
     Active Substance: GLATIRAMER ACETATE
     Indication: MULTIPLE SCLEROSIS
     Route: 058
     Dates: start: 20151028

REACTIONS (6)
  - Multiple sclerosis relapse [Unknown]
  - Injection site warmth [Unknown]
  - Injection site pain [Unknown]
  - Injection site erythema [Unknown]
  - Injection site pruritus [Unknown]
  - Injection site mass [Unknown]

NARRATIVE: CASE EVENT DATE: 201511
